FAERS Safety Report 20016593 (Version 1)
Quarter: 2021Q4

REPORT INFORMATION
  Report Type: Spontaneous
  Country: US (occurrence: None)
  Receive Date: 20211103
  Receipt Date: 20211103
  Transmission Date: 20220303
  Serious: Yes (Life-Threatening, Hospitalization)
  Sender: FDA-Public Use
  Company Number: None

PATIENT
  Age: 64 Year
  Sex: Male
  Weight: 66.22 kg

DRUGS (2)
  1. CEFAZOLIN [Suspect]
     Active Substance: CEFAZOLIN
     Indication: Surgery
     Dosage: FREQUENCY : ONCE;?
     Route: 042
     Dates: start: 20210331, end: 20210331
  2. CHLORHEXIDINE GLUCONANTE [Suspect]
     Active Substance: CHLORHEXIDINE GLUCONATE
     Indication: Surgery
     Dosage: FREQUENCY : TWICE A DAY;?
     Route: 048
     Dates: start: 20210331, end: 20210331

REACTIONS (4)
  - Cardiac arrest [None]
  - Hypoaesthesia [None]
  - Acidosis [None]
  - Local anaesthetic systemic toxicity [None]

NARRATIVE: CASE EVENT DATE: 20210412
